FAERS Safety Report 7889885-4 (Version None)
Quarter: 2011Q4

REPORT INFORMATION
  Report Type: 
  Country: None (occurrence: None)
  Receive Date: 20111103
  Receipt Date: 20111026
  Transmission Date: 20120403
  Serious: Yes (Other)
  Sender: FDA-Public Use
  Company Number: FR-GLAXOSMITHKLINE-B0758183A

PATIENT
  Sex: Female

DRUGS (7)
  1. AMOXICILLIN [Suspect]
     Indication: PROPHYLAXIS
     Dosage: 2G PER DAY
     Route: 048
     Dates: start: 20110913
  2. DEXAMETHASONE [Suspect]
     Indication: CHEMOTHERAPY
     Dosage: 40MG CYCLIC
     Route: 048
     Dates: start: 20110913
  3. BACTRIM [Suspect]
     Indication: PROPHYLAXIS
     Dosage: 1UNIT THREE TIMES PER DAY
     Route: 048
     Dates: start: 20110913, end: 20110923
  4. INNOHEP [Suspect]
     Indication: THROMBOSIS PROPHYLAXIS
     Dosage: 4500IUAX PER DAY
     Route: 058
     Dates: start: 20110913
  5. REVLIMID [Suspect]
     Indication: CHEMOTHERAPY
     Dosage: 1CAP PER DAY
     Route: 048
     Dates: start: 20110913
  6. VALACYCLOVIR HYDROCHLORIDE [Suspect]
     Indication: PROPHYLAXIS
     Dosage: 1000MG PER DAY
     Route: 048
     Dates: start: 20110913
  7. VELCADE [Suspect]
     Indication: CHEMOTHERAPY
     Dosage: 1.3MGM2 PER DAY
     Route: 058
     Dates: start: 20110913

REACTIONS (3)
  - HEPATOCELLULAR INJURY [None]
  - RASH GENERALISED [None]
  - PRURITUS [None]
